FAERS Safety Report 8893465 (Version 1)
Quarter: 2012Q4

REPORT INFORMATION
  Report Type: 
  Country: US (occurrence: US)
  Receive Date: 20121107
  Receipt Date: 20121107
  Transmission Date: 20130627
  Serious: No
  Sender: FDA-Public Use
  Company Number: US-AMGEN-USASP2011053104

PATIENT
  Age: 53 Year
  Sex: Male

DRUGS (13)
  1. ENBREL [Suspect]
     Indication: PRODUCT USED FOR UNKNOWN INDICATION
     Dosage: 50 mg, qwk
     Route: 058
  2. FLUTICASONE [Concomitant]
     Dosage: 50 mug, UNK
  3. METHOTREXATE [Concomitant]
     Dosage: 2.5 mg, UNK
  4. NEURONTIN [Concomitant]
     Dosage: 100 mg, UNK
  5. TRAMADOL HCL [Concomitant]
     Dosage: 50 mg, UNK
  6. FEXOFENADINE [Concomitant]
     Dosage: 30 mg, UNK
  7. SULFADIAZINE [Concomitant]
     Dosage: 500 mg, UNK
  8. TESTOSTERONE CYPIONATE [Concomitant]
     Dosage: 100 mg, UNK
  9. HYDROCODONE [Concomitant]
     Dosage: 5 mg, UNK
  10. APAP [Concomitant]
     Dosage: 500 mg, UNK
  11. EXCEDRIN                           /00110301/ [Concomitant]
  12. VITAMIN B12                        /00056201/ [Concomitant]
     Dosage: 1000 IU, UNK
  13. CORVITE [Concomitant]
     Dosage: 150 IU, UNK

REACTIONS (1)
  - Urinary tract infection [Recovered/Resolved]
